FAERS Safety Report 25517864 (Version 3)
Quarter: 2025Q3

REPORT INFORMATION
  Report Type: Report from Study
  Country: CA (occurrence: CA)
  Receive Date: 20250704
  Receipt Date: 20250818
  Transmission Date: 20251021
  Serious: Yes (Hospitalization, Other)
  Sender: ALEXION PHARMACEUTICALS
  Company Number: CA-AstraZeneca-CH-00898218A

PATIENT
  Sex: Female

DRUGS (8)
  1. CAPIVASERTIB [Suspect]
     Active Substance: CAPIVASERTIB
     Indication: Breast cancer metastatic
     Dosage: 400 MILLIGRAM, BID
     Dates: start: 20250331, end: 20250725
  2. METFORMIN [Concomitant]
     Active Substance: METFORMIN HYDROCHLORIDE
  3. INNOHEP [Concomitant]
     Active Substance: TINZAPARIN SODIUM
  4. ROSUVASTATIN [Concomitant]
     Active Substance: ROSUVASTATIN
  5. Prochlorazine [Concomitant]
  6. IMODIUM [Concomitant]
     Active Substance: LOPERAMIDE HYDROCHLORIDE
  7. HYDROMORPHONE [Concomitant]
     Active Substance: HYDROMORPHONE
  8. OZEMPIC [Concomitant]
     Active Substance: SEMAGLUTIDE

REACTIONS (2)
  - Hip fracture [Unknown]
  - Drug ineffective [Unknown]
